FAERS Safety Report 5321433-5 (Version None)
Quarter: 2007Q2

REPORT INFORMATION
  Report Type: 
  Country: None (occurrence: None)
  Receive Date: 20070510
  Receipt Date: 20070503
  Transmission Date: 20071010
  Serious: Yes (Hospitalization)
  Sender: FDA-Public Use
  Company Number: A0559663D

PATIENT
  Age: 80 Year
  Sex: Male
  Weight: 78 kg

DRUGS (10)
  1. REQUIP [Suspect]
     Indication: PARKINSON'S DISEASE
     Dosage: 16MG PER DAY
     Route: 048
     Dates: start: 20041104
  2. STALEVO 100 [Concomitant]
     Dosage: 100MG FOUR TIMES PER DAY
  3. PRILOSEC [Concomitant]
     Dosage: 20MG PER DAY
  4. SAW PALMETTO [Concomitant]
     Dosage: 800MG PER DAY
  5. COLACE [Concomitant]
  6. SUPPLEMENT [Concomitant]
  7. ASCORBIC ACID [Concomitant]
     Dosage: 500MG PER DAY
  8. VITAMIN E [Concomitant]
     Dosage: 400UNIT PER DAY
  9. CALCIUM CITRATE [Concomitant]
  10. IRON SUPPLEMENT [Concomitant]

REACTIONS (2)
  - CEREBRAL HAEMORRHAGE [None]
  - HEMIPARESIS [None]
